FAERS Safety Report 6692045-6 (Version None)
Quarter: 2010Q2

REPORT INFORMATION
  Report Type: 
  Country: None (occurrence: None)
  Receive Date: 20100422
  Receipt Date: 20091029
  Transmission Date: 20101027
  Serious: Yes (Other)
  Sender: FDA-Public Use
  Company Number: PHHY2009US61230

PATIENT
  Age: 39 Year
  Sex: Female

DRUGS (5)
  1. TEGRETOL-XR [Suspect]
     Dosage: 800 MG, UNK
     Dates: start: 20080101, end: 20090101
  2. TEGRETOL-XR [Suspect]
     Dosage: 400 MG, UNK
     Dates: start: 20090101, end: 20090215
  3. TEGRETOL-XR [Suspect]
     Dosage: 800 MG, UNK
     Dates: start: 20090215, end: 20090601
  4. TEGRETOL-XR [Suspect]
     Dosage: 1100 MG, UNK
     Dates: start: 20090601, end: 20090615
  5. TEGRETOL-XR [Suspect]
     Dosage: 1200 MG, UNK
     Dates: start: 20090615, end: 20090827

REACTIONS (3)
  - CAESAREAN SECTION [None]
  - DRUG EXPOSURE DURING PREGNANCY [None]
  - PREMATURE LABOUR [None]
